FAERS Safety Report 18410627 (Version 2)
Quarter: 2021Q2

REPORT INFORMATION
  Report Type: Spontaneous
  Country: US (occurrence: US)
  Receive Date: 20201021
  Receipt Date: 20210412
  Transmission Date: 20210717
  Serious: No
  Sender: FDA-Public Use
  Company Number: US-PFIZER INC-2020406777

PATIENT
  Age: 66 Year
  Sex: Female
  Weight: 105.69 kg

DRUGS (1)
  1. XELJANZ XR [Suspect]
     Active Substance: TOFACITINIB CITRATE
     Indication: RHEUMATOID ARTHRITIS
     Dosage: 11 MG, 1X/DAY (11 MG ONCE DAILY BY MOUTH)
     Route: 048

REACTIONS (4)
  - Feeling abnormal [Recovering/Resolving]
  - Memory impairment [Unknown]
  - Intentional dose omission [Unknown]
  - Confusional state [Unknown]
